FAERS Safety Report 24352786 (Version 1)
Quarter: 2024Q3

REPORT INFORMATION
  Report Type: Report from Study
  Country: US (occurrence: US)
  Receive Date: 20240923
  Receipt Date: 20240923
  Transmission Date: 20241016
  Serious: No
  Sender: ROCHE
  Company Number: US-ROCHE-3480593

PATIENT
  Age: 54 Year
  Sex: Male

DRUGS (2)
  1. HERCEPTIN HYLECTA [Suspect]
     Active Substance: HYALURONIDASE-OYSK\TRASTUZUMAB
     Indication: Skin cancer
     Dosage: DATE OF SERVICE: 08/10/2023
     Route: 065
  2. HERCEPTIN HYLECTA [Suspect]
     Active Substance: HYALURONIDASE-OYSK\TRASTUZUMAB
     Indication: Lymphoma

REACTIONS (2)
  - Off label use [Unknown]
  - No adverse event [Unknown]
